FAERS Safety Report 17447812 (Version 4)
Quarter: 2020Q2

REPORT INFORMATION
  Report Type: Spontaneous
  Country: US (occurrence: US)
  Receive Date: 20200221
  Receipt Date: 20200407
  Transmission Date: 20200713
  Serious: No
  Sender: FDA-Public Use
  Company Number: NVSC2020US046283

PATIENT
  Sex: Female

DRUGS (1)
  1. BIMATOPROST. [Suspect]
     Active Substance: BIMATOPROST
     Indication: PRODUCT USED FOR UNKNOWN INDICATION
     Dosage: 5 ML, QD (6-7 MONTHS)
     Route: 047

REACTIONS (4)
  - Madarosis [Unknown]
  - Product container seal issue [Unknown]
  - Paraesthesia [Unknown]
  - Drug ineffective [Unknown]
